FAERS Safety Report 4516691-0 (Version None)
Quarter: 2004Q4

REPORT INFORMATION
  Report Type: 
  Country: None (occurrence: None)
  Receive Date: 20041029
  Receipt Date: 20040720
  Transmission Date: 20050328
  Serious: No
  Sender: FDA-Public Use
  Company Number: 2004-118663-NL

PATIENT
  Age: 45 Year
  Sex: Female
  Weight: 54.2 kg

DRUGS (8)
  1. NUVARING [Suspect]
     Indication: CONTRACEPTION
     Dosage: DF DAILY VAGINAL
     Route: 067
     Dates: start: 20040516, end: 20040520
  2. NUVARING [Suspect]
     Indication: FUNGAL INFECTION
     Dosage: DF DAILY VAGINAL
     Route: 067
     Dates: start: 20040516, end: 20040520
  3. NUVARING [Suspect]
     Indication: PH BODY FLUID ABNORMAL
     Dosage: DF DAILY VAGINAL
     Route: 067
     Dates: start: 20040516, end: 20040520
  4. CALCIUM [Concomitant]
  5. VITAMIN D [Concomitant]
  6. VITAMIN E [Concomitant]
  7. TRAZODONE [Concomitant]
  8. YEAST INFECTION TREATMENT [Concomitant]

REACTIONS (4)
  - DEVICE FAILURE [None]
  - MEDICAL DEVICE DISCOMFORT [None]
  - VAGINAL CONTRACEPTIVE DEVICE EXPELLED [None]
  - VULVOVAGINAL DISCOMFORT [None]
